FAERS Safety Report 4529531-0 (Version None)
Quarter: 2004Q4

REPORT INFORMATION
  Report Type: 
  Country: None (occurrence: None)
  Receive Date: 20041216
  Receipt Date: 20041207
  Transmission Date: 20050328
  Serious: Yes (Other)
  Sender: FDA-Public Use
  Company Number: US-MERCK-0412USA01143

PATIENT
  Age: 31 Year
  Sex: Female

DRUGS (3)
  1. MAXALT-MLT [Suspect]
     Indication: HEADACHE
     Route: 048
     Dates: start: 20041207
  2. RANITIDINE [Concomitant]
     Route: 065
  3. IMITREX [Concomitant]
     Indication: SINUS HEADACHE
     Route: 048
     Dates: start: 20041207

REACTIONS (3)
  - DYSPHASIA [None]
  - FATIGUE [None]
  - FEELING ABNORMAL [None]
